FAERS Safety Report 12226250 (Version 2)
Quarter: 2016Q2

REPORT INFORMATION
  Report Type: Spontaneous
  Country: US (occurrence: US)
  Receive Date: 20160331
  Receipt Date: 20160404
  Transmission Date: 20160815
  Serious: Yes (Hospitalization, Other)
  Sender: FDA-Public Use
  Company Number: US-MYLANLABS-2016M1011780

PATIENT

DRUGS (2)
  1. CRYOSERV? (DIMETHYL SULFOXIDE) [Suspect]
     Active Substance: DIMETHYL SULFOXIDE
     Indication: CYSTITIS INTERSTITIAL
     Dosage: 55 G, ONCE, INSTILLED IN BLADDER
     Route: 043
     Dates: start: 20160307, end: 20160307
  2. CRYOSERV? (DIMETHYL SULFOXIDE) [Suspect]
     Active Substance: DIMETHYL SULFOXIDE
     Indication: OFF LABEL USE

REACTIONS (2)
  - Bladder pain [Recovered/Resolved]
  - Cystitis haemorrhagic [Recovered/Resolved]

NARRATIVE: CASE EVENT DATE: 20160307
